FAERS Safety Report 6452699-6 (Version None)
Quarter: 2009Q4

REPORT INFORMATION
  Report Type: 
  Country: None (occurrence: None)
  Receive Date: 20091123
  Receipt Date: 20091123
  Transmission Date: 20100525
  Serious: No
  Sender: FDA-Public Use
  Company Number: None

PATIENT
  Age: 26 Year
  Sex: Male
  Weight: 90.7194 kg

DRUGS (1)
  1. HALOPERIDOL [Suspect]
     Indication: PSYCHOTIC DISORDER
     Dosage: 5MG DAILY P.O.
     Route: 048
     Dates: start: 20091005

REACTIONS (3)
  - EXTRAPYRAMIDAL DISORDER [None]
  - JAW DISORDER [None]
  - TETANY [None]
